FAERS Safety Report 5659444-2 (Version None)
Quarter: 2008Q1

REPORT INFORMATION
  Report Type: 
  Country: None (occurrence: None)
  Receive Date: 20080307
  Receipt Date: 20080307
  Transmission Date: 20080703
  Serious: Yes (Hospitalization)
  Sender: FDA-Public Use
  Company Number: None

PATIENT
  Sex: Female

DRUGS (1)
  1. BONIVA [Suspect]
     Indication: OSTEOPOROSIS
     Dosage: 3MG 1X IV
     Route: 042
     Dates: start: 20071115

REACTIONS (4)
  - CHILLS [None]
  - HEADACHE [None]
  - MYALGIA [None]
  - PAIN [None]
